FAERS Safety Report 20789834 (Version 5)
Quarter: 2022Q3

REPORT INFORMATION
  Report Type: Report from Study
  Country: None (occurrence: GB)
  Receive Date: 20220505
  Receipt Date: 20220714
  Transmission Date: 20221027
  Serious: Yes (Hospitalization, Other)
  Sender: FDA-Public Use
  Company Number: GB-AKCEA THERAPEUTICS-2020IS001076

PATIENT
  Age: 72 Year
  Sex: Female
  Weight: 48.091 kg

DRUGS (12)
  1. TEGSEDI [Suspect]
     Active Substance: INOTERSEN SODIUM
     Indication: Hereditary neuropathic amyloidosis
     Route: 058
     Dates: start: 20200207, end: 20220429
  2. DEVICE [Suspect]
     Active Substance: DEVICE
  3. RETINOL [Concomitant]
     Active Substance: RETINOL
     Route: 048
     Dates: start: 20200124
  4. AMITRIPTYLINE [Concomitant]
     Active Substance: AMITRIPTYLINE
     Route: 048
     Dates: start: 2017
  5. AMITRIPTYLINE [Concomitant]
     Active Substance: AMITRIPTYLINE
     Route: 065
  6. OMEPRAZOLE [Concomitant]
     Active Substance: OMEPRAZOLE
     Route: 048
     Dates: start: 2017
  7. LEVOTHYROXINE [Concomitant]
     Active Substance: LEVOTHYROXINE
     Route: 065
  8. CALCIUM CARBONATE\MAGNESIUM CARBONATE [Concomitant]
     Active Substance: CALCIUM CARBONATE\MAGNESIUM CARBONATE
     Route: 065
  9. Prednizalon [Concomitant]
     Route: 065
  10. LANSOPRAZOLE [Concomitant]
     Active Substance: LANSOPRAZOLE
     Route: 048
  11. FOLIC ACID [Concomitant]
     Active Substance: FOLIC ACID
     Route: 048
  12. Prednizalon [Concomitant]
     Route: 065

REACTIONS (27)
  - Haemolytic anaemia [Recovering/Resolving]
  - Sensitive skin [Recovering/Resolving]
  - Fall [Recovered/Resolved]
  - Asthenia [Recovered/Resolved]
  - Swelling of eyelid [Recovered/Resolved]
  - Balance disorder [Not Recovered/Not Resolved]
  - Mobility decreased [Recovering/Resolving]
  - Peripheral coldness [Not Recovered/Not Resolved]
  - Gait disturbance [Recovering/Resolving]
  - Muscular weakness [Not Recovered/Not Resolved]
  - Loss of personal independence in daily activities [Recovering/Resolving]
  - Poor peripheral circulation [Recovering/Resolving]
  - Drug ineffective [Recovered/Resolved]
  - Gastrooesophageal reflux disease [Not Recovered/Not Resolved]
  - Musculoskeletal stiffness [Recovering/Resolving]
  - Fatigue [Recovering/Resolving]
  - Paraesthesia [Recovered/Resolved]
  - Hypotension [Recovered/Resolved]
  - Rash macular [Recovered/Resolved]
  - Peripheral swelling [Recovered/Resolved]
  - Tremor [Recovered/Resolved]
  - Malaise [Recovered/Resolved]
  - Feeling cold [Recovering/Resolving]
  - Chills [Recovered/Resolved]
  - Influenza like illness [Recovered/Resolved]
  - Platelet count increased [Recovered/Resolved]
  - Weight decreased [Not Recovered/Not Resolved]

NARRATIVE: CASE EVENT DATE: 20200207
